FAERS Safety Report 23977298 (Version 1)
Quarter: 2024Q2

REPORT INFORMATION
  Report Type: Spontaneous
  Country: US (occurrence: None)
  Receive Date: 20240614
  Receipt Date: 20240614
  Transmission Date: 20240715
  Serious: Yes (unspecified)
  Sender: FDA-Public Use
  Company Number: None

PATIENT
  Age: 76 Year
  Sex: Male
  Weight: 110.25 kg

DRUGS (2)
  1. MOUNJARO [Suspect]
     Active Substance: TIRZEPATIDE
     Indication: Weight decreased
  2. MOUNJARO [Suspect]
     Active Substance: TIRZEPATIDE
     Indication: Blood glucose increased

REACTIONS (11)
  - Anxiety [None]
  - Anger [None]
  - Irritability [None]
  - Fear [None]
  - Impulsive behaviour [None]
  - Dysphonia [None]
  - Sleep disorder [None]
  - Balance disorder [None]
  - Hallucination [None]
  - Fall [None]
  - Concussion [None]

NARRATIVE: CASE EVENT DATE: 20240608
